FAERS Safety Report 17917629 (Version 1)
Quarter: 2020Q2

REPORT INFORMATION
  Report Type: Report from Study
  Country: US (occurrence: US)
  Receive Date: 20200619
  Receipt Date: 20200619
  Transmission Date: 20200714
  Serious: Yes (Hospitalization, Other)
  Sender: FDA-Public Use
  Company Number: US-UCBSA-2020023106

PATIENT
  Age: 67 Year
  Sex: Male
  Weight: 73.5 kg

DRUGS (4)
  1. CARBIDOPA LEVODOPA [Concomitant]
     Active Substance: CARBIDOPA\LEVODOPA
     Indication: PRODUCT USED FOR UNKNOWN INDICATION
     Dosage: UNK
     Dates: start: 2015
  2. SELEGILINE [Suspect]
     Active Substance: SELEGILINE
     Indication: PARKINSON^S DISEASE
     Dosage: UNK, 2X/DAY (BID)
     Dates: start: 2013
  3. ROTIGOTINE [Suspect]
     Active Substance: ROTIGOTINE
     Indication: PARKINSON^S DISEASE
     Dosage: 0.5 DOSAGE FORM (CUTTING 8MG PATCH INTO HALF)
     Route: 062
  4. CARBIDOPA LEVODOPA [Concomitant]
     Active Substance: CARBIDOPA\LEVODOPA
     Indication: PRODUCT USED FOR UNKNOWN INDICATION
     Dosage: UNK
     Dates: start: 2015

REACTIONS (10)
  - Loss of consciousness [Unknown]
  - Hypotension [Unknown]
  - Dizziness [Unknown]
  - Intentional product misuse [Unknown]
  - Adverse drug reaction [Unknown]
  - Cerebrovascular accident [Unknown]
  - Fall [Unknown]
  - Blood pressure fluctuation [Unknown]
  - Autonomic nervous system imbalance [Unknown]
  - Orthostatic hypotension [Unknown]

NARRATIVE: CASE EVENT DATE: 2020
